FAERS Safety Report 5708130-9 (Version None)
Quarter: 2008Q2

REPORT INFORMATION
  Report Type: 
  Country: None (occurrence: None)
  Receive Date: 20080417
  Receipt Date: 20080411
  Transmission Date: 20081010
  Serious: Yes (Hospitalization)
  Sender: FDA-Public Use
  Company Number: A0722354A

PATIENT
  Age: 62 Year
  Sex: Female

DRUGS (18)
  1. REQUIP [Suspect]
     Indication: DRUG USE FOR UNKNOWN INDICATION
     Dosage: 1MG THREE TIMES PER DAY
     Route: 048
     Dates: start: 20060515, end: 20080301
  2. GABITRIL [Concomitant]
  3. IMIPRAMINE [Concomitant]
  4. ARICEPT [Concomitant]
  5. RISPERDAL [Concomitant]
  6. EFFEXOR [Concomitant]
  7. LOVASTATIN [Concomitant]
  8. NEXIUM [Concomitant]
  9. METOCLOPRAMIDE [Concomitant]
  10. TRENTAL [Concomitant]
  11. PREVACID [Concomitant]
  12. SYNTHROID [Concomitant]
  13. VESICARE [Concomitant]
  14. CLONAZEPAM [Concomitant]
  15. OXAPROZIN [Concomitant]
  16. EVISTA [Concomitant]
  17. COMBIVENT [Concomitant]
  18. OXYCODONE HCL [Concomitant]

REACTIONS (5)
  - ACTIVITIES OF DAILY LIVING IMPAIRED [None]
  - FALL [None]
  - GAIT DISTURBANCE [None]
  - ILL-DEFINED DISORDER [None]
  - MULTIPLE FRACTURES [None]
